FAERS Safety Report 7975641-5 (Version None)
Quarter: 2011Q4

REPORT INFORMATION
  Report Type: 
  Country: None (occurrence: None)
  Receive Date: 20111213
  Receipt Date: 20111005
  Transmission Date: 20120403
  Serious: No
  Sender: FDA-Public Use
  Company Number: US-AMGEN-USASP2011051567

PATIENT
  Age: 46 Year
  Sex: Female

DRUGS (1)
  1. ENBREL [Suspect]
     Indication: RHEUMATOID ARTHRITIS
     Dosage: 50 MG, QWK
     Dates: start: 20110701, end: 20110901

REACTIONS (10)
  - NASAL CONGESTION [None]
  - NODULE [None]
  - COUGH [None]
  - MALAISE [None]
  - LACRIMATION INCREASED [None]
  - ARTHRALGIA [None]
  - INJECTION SITE PAIN [None]
  - PRODUCTIVE COUGH [None]
  - HEADACHE [None]
  - CHEST PAIN [None]
